FAERS Safety Report 8688338 (Version 2)
Quarter: 2013Q4

REPORT INFORMATION
  Report Type: Spontaneous
  Country: US (occurrence: US)
  Receive Date: 20120727
  Receipt Date: 20131031
  Transmission Date: 20140711
  Serious: No
  Sender: FDA-Public Use
  Company Number: US-009507513-2012SP022673

PATIENT
  Sex: Female

DRUGS (3)
  1. CLARITIN [Suspect]
     Indication: HYPERSENSITIVITY
     Dosage: UNK UNK, QD
     Route: 048
     Dates: start: 201203
  2. CLARITIN [Suspect]
     Indication: NASOPHARYNGITIS
     Dosage: 10 MG, BID
     Route: 048
     Dates: start: 20120319
  3. ASPIRIN [Concomitant]
     Indication: PRODUCT USED FOR UNKNOWN INDICATION
     Dosage: 2 DF, UNKNOWN

REACTIONS (7)
  - Musculoskeletal disorder [Not Recovered/Not Resolved]
  - Pain [Unknown]
  - Pain in extremity [Not Recovered/Not Resolved]
  - Feeling abnormal [Unknown]
  - Asthenia [Unknown]
  - Somnolence [Unknown]
  - Feeling of relaxation [Unknown]
